FAERS Safety Report 22139251 (Version 1)
Quarter: 2023Q1

REPORT INFORMATION
  Report Type: Spontaneous
  Country: US (occurrence: US)
  Receive Date: 20230327
  Receipt Date: 20230327
  Transmission Date: 20230417
  Serious: Yes (Hospitalization, Other)
  Sender: FDA-Public Use
  Company Number: US-drreddys-SPO/USA/23/0162681

PATIENT
  Age: 90 Year
  Sex: Male

DRUGS (1)
  1. AMIODARONE HYDROCHLORIDE [Suspect]
     Active Substance: AMIODARONE HYDROCHLORIDE
     Indication: Atrial fibrillation
     Dosage: FIVE MONTHS PRIOR

REACTIONS (4)
  - Respiratory failure [Recovering/Resolving]
  - Myxoedema coma [Recovering/Resolving]
  - Cardiac failure acute [Recovering/Resolving]
  - Product use in unapproved indication [Unknown]
